FAERS Safety Report 9685810 (Version 2)
Quarter: 2013Q4

REPORT INFORMATION
  Report Type: Spontaneous
  Country: US (occurrence: US)
  Receive Date: 20131113
  Receipt Date: 20131204
  Transmission Date: 20140711
  Serious: Yes (Other)
  Sender: FDA-Public Use
  Company Number: US-PFIZER INC-2013324149

PATIENT
  Age: 42 Year
  Sex: Female
  Weight: 67.57 kg

DRUGS (3)
  1. PRISTIQ [Suspect]
     Indication: DEPRESSION
     Dosage: 100 MG, 1X/DAY
     Route: 048
     Dates: end: 201308
  2. SPIRONOLACTONE [Concomitant]
     Dosage: 100 MG, UNK
  3. MULTIVITAMINS [Concomitant]
     Dosage: UNK

REACTIONS (1)
  - Depression [Unknown]
